FAERS Safety Report 8471408-2 (Version None)
Quarter: 2012Q2

REPORT INFORMATION
  Report Type: 
  Country: None (occurrence: None)
  Receive Date: 20120627
  Receipt Date: 20120626
  Transmission Date: 20120825
  Serious: Yes (Hospitalization)
  Sender: FDA-Public Use
  Company Number: IT-ROCHE-1077842

PATIENT
  Sex: Male

DRUGS (6)
  1. LEUCOVORIN CALCIUM [Concomitant]
  2. DEXAMETHASONE SODIUM PHOSPHATE [Concomitant]
  3. FLUOROURACIL [Concomitant]
     Indication: COLON CANCER
  4. ONDANSETRON (ZOFRAN) [Concomitant]
  5. IRINOTECAN HCL [Concomitant]
     Indication: COLON CANCER
  6. AVASTIN [Suspect]
     Indication: COLON CANCER
     Route: 042
     Dates: start: 20120125, end: 20120612

REACTIONS (2)
  - NEUTROPENIA [None]
  - HYPERBILIRUBINAEMIA [None]
